FAERS Safety Report 6359783-6 (Version None)
Quarter: 2009Q3

REPORT INFORMATION
  Report Type: 
  Country: None (occurrence: None)
  Receive Date: 20090917
  Receipt Date: 20090909
  Transmission Date: 20100115
  Serious: Yes (Congenital Anomaly)
  Sender: FDA-Public Use
  Company Number: A0680354A

PATIENT
  Sex: Male

DRUGS (3)
  1. PAXIL [Suspect]
     Indication: DEPRESSION
     Dosage: 20MG VARIABLE DOSE
     Dates: start: 19940101, end: 19960601
  2. VITAMIN TAB [Concomitant]
  3. XANAX [Concomitant]
     Dates: start: 19940101, end: 19950101

REACTIONS (4)
  - AORTIC VALVE STENOSIS [None]
  - COARCTATION OF THE AORTA [None]
  - DRUG EXPOSURE DURING PREGNANCY [None]
  - MITRAL VALVE DISEASE [None]
